FAERS Safety Report 4783137-7 (Version None)
Quarter: 2005Q3

REPORT INFORMATION
  Report Type: 
  Country: None (occurrence: None)
  Receive Date: 20050928
  Receipt Date: 20050928
  Transmission Date: 20060218
  Serious: Yes (Hospitalization)
  Sender: FDA-Public Use
  Company Number: None

PATIENT
  Age: 51 Year
  Sex: Male
  Weight: 87.9978 kg

DRUGS (9)
  1. ARANESP [Suspect]
     Indication: ANAEMIA
     Dosage: 200 MCG SQ WEEKLY
     Route: 058
     Dates: start: 20050620
  2. GEMZAR [Suspect]
     Indication: NEOPLASM MALIGNANT
     Dosage: 1800 MG IV
     Route: 042
     Dates: start: 20050726
  3. GEMZAR [Suspect]
     Indication: NEOPLASM MALIGNANT
     Dosage: 1800 MG IV
     Route: 042
     Dates: start: 20050802
  4. PARAPLATIN [Suspect]
     Indication: NEOPLASM MALIGNANT
     Dosage: 727 MG IV
     Route: 042
     Dates: start: 20050726
  5. PARAPLATIN [Suspect]
     Indication: NEOPLASM MALIGNANT
     Dosage: 727 MG IV
     Route: 042
     Dates: start: 20050802
  6. NEXIUM [Concomitant]
  7. BENICAR [Concomitant]
  8. ZOCOR [Concomitant]
  9. SENOKOT [Concomitant]

REACTIONS (9)
  - CHEST WALL PAIN [None]
  - CHILLS [None]
  - FATIGUE [None]
  - INDURATION [None]
  - NON-SMALL CELL LUNG CANCER [None]
  - ORAL INTAKE REDUCED [None]
  - PAIN IN EXTREMITY [None]
  - PYREXIA [None]
  - THROMBOCYTOPENIA [None]
